FAERS Safety Report 20476456 (Version 1)
Quarter: 2022Q1

REPORT INFORMATION
  Report Type: Report from Study
  Country: JP (occurrence: JP)
  Receive Date: 20220215
  Receipt Date: 20220215
  Transmission Date: 20220423
  Serious: Yes (Other)
  Sender: FDA-Public Use
  Company Number: JP-PFIZER INC-202200256337

PATIENT

DRUGS (2)
  1. CISPLATIN [Suspect]
     Active Substance: CISPLATIN
     Indication: Small cell lung cancer
     Dosage: 60 MG/M2, CYCLIC, ON DAY 1, EVERY FOUR WEEKS, FOUR CYCLES
     Route: 042
  2. IRINOTECAN HYDROCHLORIDE [Suspect]
     Active Substance: IRINOTECAN HYDROCHLORIDE
     Indication: Small cell lung cancer
     Dosage: 60 MG/M2, CYCLIC (ON DAYS 1, 8, AND 15 EVERY FOUR WEEKS)
     Route: 042

REACTIONS (1)
  - Haemorrhage intracranial [Unknown]
